FAERS Safety Report 16961861 (Version 1)
Quarter: 2019Q4

REPORT INFORMATION
  Report Type: Spontaneous
  Country: US (occurrence: US)
  Receive Date: 20191025
  Receipt Date: 20191025
  Transmission Date: 20200122
  Serious: Yes (Other)
  Sender: FDA-Public Use
  Company Number: US-PFIZER INC-2019456603

PATIENT
  Age: 51 Year
  Sex: Male
  Weight: 72.57 kg

DRUGS (4)
  1. VIAGRA [Suspect]
     Active Substance: SILDENAFIL CITRATE
     Indication: ERECTILE DYSFUNCTION
     Dosage: 100 MG, AS NEEDED (VERY REGULARLY, ONCE A WEEK OR ONCE EVERY OTHER WEEK, SOMETIMES TWICE A WEEK)
     Route: 048
     Dates: start: 2015
  2. ZANAFLEX [Concomitant]
     Active Substance: TIZANIDINE HYDROCHLORIDE
     Indication: NERVE INJURY
     Dosage: UNK
     Dates: start: 2015
  3. FLEXERIL [CEFIXIME] [Concomitant]
     Active Substance: CEFIXIME
     Indication: NERVE INJURY
     Dosage: 1 DF, DAILY
     Route: 048
     Dates: start: 2015
  4. GABAPENTIN. [Concomitant]
     Active Substance: GABAPENTIN
     Indication: NERVE INJURY
     Dosage: 900 MG, DAILY
     Route: 048
     Dates: start: 2015

REACTIONS (1)
  - Spinal cord injury cervical [Not Recovered/Not Resolved]

NARRATIVE: CASE EVENT DATE: 2015
